FAERS Safety Report 20594518 (Version 1)
Quarter: 2022Q1

REPORT INFORMATION
  Report Type: Spontaneous
  Country: US (occurrence: None)
  Receive Date: 20220315
  Receipt Date: 20220315
  Transmission Date: 20220423
  Serious: Yes (Hospitalization)
  Sender: FDA-Public Use
  Company Number: US-FARMAPROD-202203-0368

PATIENT
  Sex: Male

DRUGS (17)
  1. OXERVATE [Suspect]
     Active Substance: CENEGERMIN-BKBJ
     Indication: Ulcerative keratitis
     Route: 047
     Dates: start: 20220221
  2. OXERVATE [Suspect]
     Active Substance: CENEGERMIN-BKBJ
     Indication: Neurotrophic keratopathy
  3. ACYCLOVIR [Concomitant]
     Active Substance: ACYCLOVIR
  4. TOBRAMYCIN [Concomitant]
     Active Substance: TOBRAMYCIN
  5. VITAMIN D2 [Concomitant]
     Active Substance: ERGOCALCIFEROL
  6. PHOSPHO-TRIN 250 NEUTRAL [Concomitant]
  7. EFFER-K [Concomitant]
  8. XIFAXAN [Concomitant]
     Active Substance: RIFAXIMIN
  9. MIRTAZAPINE [Concomitant]
     Active Substance: MIRTAZAPINE
  10. METRONIDAZOLE [Concomitant]
     Active Substance: METRONIDAZOLE
  11. ATROPINE\DIPHENOXYLATE [Concomitant]
     Active Substance: ATROPINE\DIPHENOXYLATE
     Dosage: 2.5-0.25 MG
  12. ARANESP [Concomitant]
     Active Substance: DARBEPOETIN ALFA
     Dosage: 25MCG/0.42
  13. CIPROFLOXACIN HYDROCHLORIDE [Concomitant]
     Active Substance: CIPROFLOXACIN HYDROCHLORIDE
  14. ASPIRIN [Concomitant]
     Active Substance: ASPIRIN
  15. LOSARTAN POTASSIUM [Concomitant]
     Active Substance: LOSARTAN POTASSIUM
  16. FUROSEMIDE [Concomitant]
     Active Substance: FUROSEMIDE
  17. NOVOLIN NOS [Concomitant]
     Active Substance: INSULIN HUMAN
     Dosage: 100/ML VIAL

REACTIONS (1)
  - Hospitalisation [Unknown]
